FAERS Safety Report 12588284 (Version 1)
Quarter: 2016Q3

REPORT INFORMATION
  Report Type: Spontaneous
  Country: US (occurrence: US)
  Receive Date: 20160725
  Receipt Date: 20160725
  Transmission Date: 20161109
  Serious: No
  Sender: FDA-Public Use
  Company Number: US-JNJFOC-20160509407

PATIENT
  Age: 4 Year
  Sex: Male
  Weight: 15.42 kg

DRUGS (2)
  1. CHILDRENS ZYRTEC [Suspect]
     Active Substance: CETIRIZINE HYDROCHLORIDE
     Route: 048
  2. CHILDRENS ZYRTEC [Suspect]
     Active Substance: CETIRIZINE HYDROCHLORIDE
     Indication: MULTIPLE ALLERGIES
     Dosage: .5 - 1 TSP
     Route: 048

REACTIONS (4)
  - Vomiting [Recovered/Resolved]
  - Reaction to drug excipients [Recovered/Resolved]
  - Product formulation issue [Unknown]
  - Product label issue [Unknown]
